FAERS Safety Report 25226764 (Version 1)
Quarter: 2025Q2

REPORT INFORMATION
  Report Type: Report from Study
  Country: US (occurrence: US)
  Receive Date: 20250422
  Receipt Date: 20250422
  Transmission Date: 20250716
  Serious: Yes (Other)
  Sender: ALEXION PHARMACEUTICALS
  Company Number: US-AstraZeneca-CH-00849146A

PATIENT

DRUGS (3)
  1. SOLIRIS [Suspect]
     Active Substance: ECULIZUMAB
     Route: 065
  2. ULTOMIRIS [Suspect]
     Active Substance: RAVULIZUMAB-CWVZ
     Route: 065
  3. BENADRYL [Suspect]
     Active Substance: DIPHENHYDRAMINE HYDROCHLORIDE
     Route: 065

REACTIONS (16)
  - Seizure [Unknown]
  - Localised infection [Unknown]
  - Chest pain [Unknown]
  - Sinusitis [Unknown]
  - Drug hypersensitivity [Unknown]
  - Pruritus [Unknown]
  - Ingrowing nail [Unknown]
  - Anxiety [Unknown]
  - Stress [Unknown]
  - Asthma [Unknown]
  - Fatigue [Unknown]
  - Erythema [Unknown]
  - Aphonia [Unknown]
  - Smoke sensitivity [Unknown]
  - Dyspnoea [Unknown]
  - Insomnia [Unknown]
